FAERS Safety Report 8999283 (Version 1)
Quarter: 2013Q1

REPORT INFORMATION
  Report Type: Spontaneous
  Country: US (occurrence: US)
  Receive Date: 20130103
  Receipt Date: 20130103
  Transmission Date: 20140127
  Serious: Yes (Hospitalization, Other)
  Sender: FDA-Public Use
  Company Number: US-ELI_LILLY_AND_COMPANY-US201212005087

PATIENT
  Sex: Female

DRUGS (1)
  1. HUMALOG LISPRO [Suspect]
     Dosage: UNK, UNKNOWN
     Route: 058

REACTIONS (5)
  - Blood glucose increased [Recovering/Resolving]
  - Malaise [Unknown]
  - Nausea [Unknown]
  - Memory impairment [Unknown]
  - Blood glucose decreased [Unknown]
